FAERS Safety Report 6556366-X (Version None)
Quarter: 2010Q1

REPORT INFORMATION
  Report Type: 
  Country: None (occurrence: None)
  Receive Date: 20100125
  Receipt Date: 20100113
  Transmission Date: 20100710
  Serious: Yes (Death, Hospitalization)
  Sender: FDA-Public Use
  Company Number: 93831

PATIENT
  Age: 52 Year
  Sex: Male

DRUGS (1)
  1. METHOTREXATE [Suspect]
     Indication: PSORIASIS
     Dosage: 7.5MG X WEEKLY

REACTIONS (8)
  - ACUTE LYMPHOCYTIC LEUKAEMIA [None]
  - DIZZINESS [None]
  - DYSPNOEA EXERTIONAL [None]
  - FATIGUE [None]
  - HAEMOGLOBIN DECREASED [None]
  - INFECTION [None]
  - PALPITATIONS [None]
  - STEM CELL TRANSPLANT [None]
